FAERS Safety Report 4348750-X (Version None)
Quarter: 2004Q2

REPORT INFORMATION
  Report Type: 
  Country: None (occurrence: None)
  Receive Date: 20040423
  Receipt Date: 20040414
  Transmission Date: 20050107
  Serious: Yes (Hospitalization, Other)
  Sender: FDA-Public Use
  Company Number: 2004-04-0933

PATIENT
  Age: 45 Year
  Sex: Male

DRUGS (5)
  1. TEMODAR [Suspect]
     Indication: ANAPLASTIC ASTROCYTOMA
     Dosage: SEE IMAGE
     Route: 048
     Dates: start: 20020801, end: 20040101
  2. TEMODAR [Suspect]
     Indication: ANAPLASTIC ASTROCYTOMA
     Dosage: SEE IMAGE
     Route: 048
     Dates: start: 20040210, end: 20040309
  3. NEURONTIN [Concomitant]
  4. THALIDOMIDE [Concomitant]
  5. CHEMOTHERAPY REGIMENS [Concomitant]

REACTIONS (2)
  - APLASTIC ANAEMIA [None]
  - PLATELET COUNT DECREASED [None]
